FAERS Safety Report 12666014 (Version 1)
Quarter: 2016Q3

REPORT INFORMATION
  Report Type: Spontaneous
  Country: US (occurrence: US)
  Receive Date: 20160818
  Receipt Date: 20160818
  Transmission Date: 20161109
  Serious: No
  Sender: FDA-Public Use
  Company Number: US-ASTRAZENECA-2016SE64522

PATIENT
  Age: 19012 Day
  Sex: Female
  Weight: 61.2 kg

DRUGS (11)
  1. MOVANTIK [Suspect]
     Active Substance: NALOXEGOL OXALATE
     Indication: CONSTIPATION
     Dosage: 25.0MG UNKNOWN
     Route: 048
     Dates: start: 20160304, end: 20160305
  2. MOVANTIK [Suspect]
     Active Substance: NALOXEGOL OXALATE
     Indication: CONSTIPATION
     Dosage: 25.0MG UNKNOWN
     Route: 048
     Dates: start: 20160509
  3. LEXAPRO [Concomitant]
     Active Substance: ESCITALOPRAM OXALATE
     Indication: DEPRESSION
     Route: 048
  4. MULTIVITAMIN [Concomitant]
     Active Substance: VITAMINS
     Indication: SUPPLEMENTATION THERAPY
     Dosage: 1.0DF UNKNOWN
     Route: 048
     Dates: start: 2000
  5. SOMA [Concomitant]
     Active Substance: CARISOPRODOL
     Indication: BACK PAIN
     Route: 048
  6. THYROXINE [Concomitant]
     Active Substance: LEVOTHYROXINE
     Indication: THYROID DISORDER
     Dosage: INCREASED  UNKNOWN
  7. TRAZODONE [Concomitant]
     Active Substance: TRAZODONE HYDROCHLORIDE
     Indication: SLEEP DISORDER
     Route: 048
     Dates: start: 2014
  8. NORCO [Concomitant]
     Active Substance: ACETAMINOPHEN\HYDROCODONE BITARTRATE
     Indication: PAIN
     Dosage: 10/325 MG, FREQUENCY 3 TIMES A DAY
     Route: 048
     Dates: start: 2004
  9. CLONAZAPAM [Concomitant]
     Active Substance: CLONAZEPAM
     Indication: ANXIETY
     Dosage: 1.5 DOSE
     Route: 048
  10. MORPHINE SULFATE IMMEDIATE RELEASE [Concomitant]
     Indication: PAIN
     Route: 048
     Dates: start: 2004
  11. THYROXINE [Concomitant]
     Active Substance: LEVOTHYROXINE
     Indication: THYROID DISORDER
     Dosage: 112.0UG UNKNOWN

REACTIONS (9)
  - Dizziness [Unknown]
  - Impaired driving ability [Unknown]
  - Diarrhoea [Unknown]
  - Fatigue [Unknown]
  - Heart rate decreased [Unknown]
  - Intentional product misuse [Unknown]
  - Abdominal pain [Unknown]
  - Body temperature increased [Unknown]
  - Drug ineffective [Unknown]

NARRATIVE: CASE EVENT DATE: 20160304
